FAERS Safety Report 6642472-8 (Version None)
Quarter: 2010Q1

REPORT INFORMATION
  Report Type: 
  Country: None (occurrence: None)
  Receive Date: 20100319
  Receipt Date: 20100308
  Transmission Date: 20100710
  Serious: Yes (Life-Threatening, Hospitalization)
  Sender: FDA-Public Use
  Company Number: US-ROCHE-690061

PATIENT
  Sex: Male
  Weight: 83.6 kg

DRUGS (2)
  1. BEVACIZUMAB [Suspect]
     Indication: MALIGNANT MELANOMA
     Route: 065
     Dates: start: 20091124, end: 20100129
  2. IPILIMUMAB [Suspect]
     Indication: MALIGNANT MELANOMA
     Route: 065
     Dates: start: 20091124, end: 20100129

REACTIONS (5)
  - ALANINE AMINOTRANSFERASE [None]
  - ASPARTATE AMINOTRANSFERASE [None]
  - BLOOD ALKALINE PHOSPHATASE [None]
  - HEPATITIS [None]
  - HYPERBILIRUBINAEMIA [None]
